FAERS Safety Report 4539541-5 (Version None)
Quarter: 2004Q4

REPORT INFORMATION
  Report Type: 
  Country: None (occurrence: None)
  Receive Date: 20041222
  Receipt Date: 20041130
  Transmission Date: 20050328
  Serious: Yes (Other)
  Sender: FDA-Public Use
  Company Number: JP_041205365

PATIENT
  Age: 29 Year
  Sex: Male
  Weight: 80 kg

DRUGS (6)
  1. ZYPREXA [Suspect]
     Indication: SCHIZOPHRENIA
     Dosage: 5 MG/1 DAY
     Dates: start: 20040714, end: 20040908
  2. HIRNAMIN (LEVOMEPROMAZINE) [Concomitant]
  3. TASMOLIN (BIPERIDEN) [Concomitant]
  4. HALCION [Concomitant]
  5. LENDORM [Concomitant]
  6. DORAL [Concomitant]

REACTIONS (1)
  - AGGRESSION [None]
